FAERS Safety Report 4967303-3 (Version None)
Quarter: 2006Q2

REPORT INFORMATION
  Report Type: 
  Country: None (occurrence: None)
  Receive Date: 20060404
  Receipt Date: 20060320
  Transmission Date: 20061013
  Serious: Yes (Hospitalization)
  Sender: FDA-Public Use
  Company Number: 2006PV009928

PATIENT
  Age: 62 Year
  Sex: Female
  Weight: 98.8842 kg

DRUGS (16)
  1. BYETTA [Suspect]
     Indication: DIABETES MELLITUS NON-INSULIN-DEPENDENT
     Dosage: SEE IMAGE
     Route: 058
     Dates: start: 20051201, end: 20060101
  2. BYETTA [Suspect]
     Indication: DIABETES MELLITUS NON-INSULIN-DEPENDENT
     Dosage: SEE IMAGE
     Route: 058
     Dates: start: 20060101
  3. HUMALOG [Concomitant]
  4. AMARYL [Concomitant]
  5. METFORMIN [Concomitant]
  6. LASIX [Concomitant]
  7. ASPIRIN [Concomitant]
  8. COUMADIN [Concomitant]
  9. ZETIA [Concomitant]
  10. MAGNESIUM OXIDE [Concomitant]
  11. SOTALOL HCL [Concomitant]
  12. MONOPRIL [Concomitant]
  13. CYMBALTA [Concomitant]
  14. VITAMIN D [Concomitant]
  15. CRESTOR [Concomitant]
  16. VITAMIN C WITH IRON [Concomitant]

REACTIONS (17)
  - ATRIAL FIBRILLATION [None]
  - ATRIAL FLUTTER [None]
  - BLOOD GLUCOSE DECREASED [None]
  - BLOOD GLUCOSE INCREASED [None]
  - BUNDLE BRANCH BLOCK RIGHT [None]
  - CHILLS [None]
  - CIRCUMSTANCE OR INFORMATION CAPABLE OF LEADING TO MEDICATION ERROR [None]
  - DECREASED APPETITE [None]
  - ELECTROCARDIOGRAM ST-T CHANGE [None]
  - FACE INJURY [None]
  - FALL [None]
  - HEADACHE [None]
  - HEART RATE INCREASED [None]
  - HYPERHIDROSIS [None]
  - MITRAL VALVE INCOMPETENCE [None]
  - TROPONIN INCREASED [None]
  - WEIGHT DECREASED [None]
